FAERS Safety Report 4338404-8 (Version None)
Quarter: 2004Q2

REPORT INFORMATION
  Report Type: 
  Country: None (occurrence: None)
  Receive Date: 20040409
  Receipt Date: 20040329
  Transmission Date: 20050107
  Serious: Yes (Hospitalization)
  Sender: FDA-Public Use
  Company Number: 2004CG00617

PATIENT
  Age: 64 Year
  Sex: Male

DRUGS (7)
  1. TENORMIN [Suspect]
     Dosage: 50 MG DAILY PO
     Route: 048
     Dates: start: 20031001, end: 20040217
  2. SOLUPRED [Concomitant]
  3. TILDIEM [Concomitant]
  4. VASTEN [Concomitant]
  5. NEORAL [Concomitant]
  6. CELLCEPT [Concomitant]
  7. LASIX [Concomitant]

REACTIONS (6)
  - CARDIAC FAILURE [None]
  - CARDIOMEGALY [None]
  - PLEURAL EFFUSION [None]
  - PULMONARY HYPERTENSION [None]
  - RIGHT VENTRICULAR SYSTOLIC PRESSURE INCREASED [None]
  - SINUS BRADYCARDIA [None]
